FAERS Safety Report 4815886-6 (Version None)
Quarter: 2005Q4

REPORT INFORMATION
  Report Type: 
  Country: None (occurrence: None)
  Receive Date: 20051031
  Receipt Date: 20051020
  Transmission Date: 20060501
  Serious: Yes (Other)
  Sender: FDA-Public Use
  Company Number: DE-JNJFOC-20051004410

PATIENT
  Sex: Male

DRUGS (2)
  1. RISPERDAL [Suspect]
     Route: 065
  2. RISPERDAL CONSTA [Suspect]
     Route: 030

REACTIONS (2)
  - BLOOD CREATINE PHOSPHOKINASE MB INCREASED [None]
  - NAUSEA [None]
